FAERS Safety Report 15276390 (Version 1)
Quarter: 2018Q3

REPORT INFORMATION
  Report Type: Spontaneous
  Country: FR (occurrence: FR)
  Receive Date: 20180814
  Receipt Date: 20180814
  Transmission Date: 20181010
  Serious: Yes (Other)
  Sender: FDA-Public Use
  Company Number: FR-SA-2018SA042253

PATIENT
  Age: 26 Year
  Sex: Female

DRUGS (19)
  1. ACYCLOVIR [ACICLOVIR] [Concomitant]
     Active Substance: ACYCLOVIR
     Dosage: 250 MG, QD
     Route: 048
  2. ZOLPIDEM TARTRATE. [Suspect]
     Active Substance: ZOLPIDEM TARTRATE
     Dosage: 10 MG,QD
     Route: 048
  3. VORICONAZOLE. [Interacting]
     Active Substance: VORICONAZOLE
     Indication: BRONCHOPULMONARY ASPERGILLOSIS
     Dosage: 200 MG, QD
     Route: 042
  4. VORICONAZOLE. [Interacting]
     Active Substance: VORICONAZOLE
     Dosage: 600 MG,QD
     Route: 042
  5. METHYLPREDNISOLONE. [Interacting]
     Active Substance: METHYLPREDNISOLONE
     Dosage: 50 MG,QD
     Route: 048
  6. METOCLOPRAMIDE. [Concomitant]
     Active Substance: METOCLOPRAMIDE
     Dosage: 20 MG, TID
     Route: 048
  7. PARACETAMOL [Interacting]
     Active Substance: ACETAMINOPHEN
     Dosage: 300 MG,QD
     Route: 048
  8. CIPROFLOXACIN. [Interacting]
     Active Substance: CIPROFLOXACIN
     Dosage: 400 MG,QD
     Route: 042
  9. PARACETAMOL [Interacting]
     Active Substance: ACETAMINOPHEN
     Dosage: 1000 MG, QD
  10. VENLAFAXINE HYDROCHLORIDE. [Interacting]
     Active Substance: VENLAFAXINE HYDROCHLORIDE
     Dosage: 37.5 MG,QD
     Route: 048
  11. NICARDIPINE [Interacting]
     Active Substance: NICARDIPINE
     Dosage: 50 MG,QD
     Route: 042
  12. VORICONAZOLE. [Interacting]
     Active Substance: VORICONAZOLE
     Dosage: 400 MG,QD
     Route: 042
  13. ALPRAZOLAM. [Interacting]
     Active Substance: ALPRAZOLAM
     Dosage: .5 MG,QD
     Route: 048
  14. AMPHOTERICIN B. [Suspect]
     Active Substance: AMPHOTERICIN B
     Dosage: 180 MG,QD
     Route: 042
  15. VANCOMYCIN [Concomitant]
     Active Substance: VANCOMYCIN
     Dosage: 2000 MG, QD
     Route: 042
  16. GABAPENTIN. [Concomitant]
     Active Substance: GABAPENTIN
     Dosage: 10 MG, QD
     Route: 048
  17. IMIPENEM [CILASTATIN SODIUM;IMIPENEM] [Concomitant]
     Route: 042
  18. POTASSIUM CHLORIDE. [Concomitant]
     Active Substance: POTASSIUM CHLORIDE
  19. FUROSEMIDE. [Concomitant]
     Active Substance: FUROSEMIDE
     Dosage: 80 MG, QD
     Route: 042

REACTIONS (8)
  - Drug interaction [Unknown]
  - Drug level increased [Recovered/Resolved]
  - Cough [Recovered/Resolved]
  - Treatment failure [Unknown]
  - Haemoptysis [Recovered/Resolved]
  - Vomiting [Recovered/Resolved]
  - Aspergillus infection [Unknown]
  - Drug level below therapeutic [Unknown]
